FAERS Safety Report 16010655 (Version 2)
Quarter: 2019Q1

REPORT INFORMATION
  Report Type: Spontaneous
  Country: US (occurrence: US)
  Receive Date: 20190227
  Receipt Date: 20190321
  Transmission Date: 20190418
  Serious: Yes (Other)
  Sender: FDA-Public Use
  Company Number: US-BAXTER-2019BAX003927

PATIENT

DRUGS (1)
  1. RECOTHROM [Suspect]
     Active Substance: THROMBIN ALFA
     Indication: GINGIVAL BLEEDING
     Route: 042
     Dates: start: 20181213

REACTIONS (4)
  - Wrong product administered [Unknown]
  - Product label issue [Unknown]
  - Incorrect route of product administration [Unknown]
  - Unresponsive to stimuli [Unknown]

NARRATIVE: CASE EVENT DATE: 20181213
